FAERS Safety Report 8576010-X (Version None)
Quarter: 2012Q3

REPORT INFORMATION
  Report Type: 
  Country: None (occurrence: None)
  Receive Date: 20120725
  Receipt Date: 20120709
  Transmission Date: 20120928
  Serious: Yes (Hospitalization)
  Sender: FDA-Public Use
  Company Number: 2010002862

PATIENT
  Age: 66 Year
  Sex: Female

DRUGS (16)
  1. LOVASTATIN [Concomitant]
  2. MIRALAX [Concomitant]
  3. ONDANSETRON [Concomitant]
  4. ERLOTINIB HYDROCHLORIDE [Suspect]
     Indication: PANCREATIC CARCINOMA
     Dosage: 100 MG, UID/QD,ORAL
     Route: 048
     Dates: start: 20100701, end: 20100713
  5. AMLODIPINE [Concomitant]
  6. OXYCODONE HCL [Concomitant]
  7. COMPAZINE [Concomitant]
  8. ATIVAN [Concomitant]
  9. DICLOFENAC SODIUM [Concomitant]
  10. ROBITUSSIN DM (ROBITUSSIN-DM) [Concomitant]
  11. PACLITAXEL [Suspect]
     Indication: PANCREATIC CARCINOMA
     Dosage: 100 MG, OTHER, IV NOS
     Route: 050
     Dates: start: 20100701, end: 20100708
  12. METOPROLOL TARTRATE [Concomitant]
  13. GEMCITABINE [Suspect]
     Indication: PANCREATIC CARCINOMA
     Dosage: 1000 MG, OTHER, IV NOS
     Route: 042
     Dates: start: 20100701, end: 20100708
  14. IBUPROFEN [Concomitant]
  15. AMBIEN [Concomitant]
  16. METOCLOPRAMIDE [Concomitant]

REACTIONS (9)
  - RASH [None]
  - FEELING COLD [None]
  - MENINGIOMA [None]
  - OPTIC NEUROPATHY [None]
  - NIGHT BLINDNESS [None]
  - TOXIC NEUROPATHY [None]
  - PRURITUS [None]
  - NIGHT SWEATS [None]
  - ABDOMINAL PAIN [None]
